FAERS Safety Report 23129053 (Version 2)
Quarter: 2023Q4

REPORT INFORMATION
  Report Type: Spontaneous
  Country: JP (occurrence: JP)
  Receive Date: 20231031
  Receipt Date: 20231130
  Transmission Date: 20240109
  Serious: Yes (Other)
  Sender: FDA-Public Use
  Company Number: JP-BAYER-2023A152477

PATIENT
  Age: 82 Year
  Sex: Female

DRUGS (17)
  1. IOPAMIRON [Suspect]
     Active Substance: IOPAMIDOL
     Indication: Angiocardiogram
     Dosage: 15 ML, SINGLE
     Route: 013
     Dates: start: 20230919, end: 20230919
  2. XYLOCAINE [Concomitant]
     Active Substance: LIDOCAINE HYDROCHLORIDE
     Indication: Anaesthesia procedure
     Route: 058
  3. XYLOCAINE [Concomitant]
     Active Substance: LIDOCAINE HYDROCHLORIDE
     Route: 058
  4. HEPARIN [Concomitant]
     Active Substance: HEPARIN SODIUM
     Dosage: AT THE START OF THE EXAMINATION, 2000 UNIT
  5. HEPARIN [Concomitant]
     Active Substance: HEPARIN SODIUM
     Dosage: AT THE START OF THE EXAMINATION, 2000 UNIT
     Route: 013
  6. ISOSORBIDE DINITRATE [Concomitant]
     Active Substance: ISOSORBIDE DINITRATE
     Dosage: 1 CC, IMMEDIATELY AFTER SHEATH INSERTION, RADIAL ARTERY
     Route: 013
  7. ISOSORBIDE DINITRATE [Concomitant]
     Active Substance: ISOSORBIDE DINITRATE
     Dosage: 1 CC, IMMEDIATELY AFTER SHEATH INSERTION, RADIAL ARTERY
     Route: 013
  8. TELMISARTAN [Concomitant]
     Active Substance: TELMISARTAN
  9. BENIDIPINE HYDROCHLORIDE [Concomitant]
     Active Substance: BENIDIPINE HYDROCHLORIDE
  10. ATORVASTATIN [Concomitant]
     Active Substance: ATORVASTATIN
  11. NICERGOLINE [Concomitant]
     Active Substance: NICERGOLINE
  12. RABEPRAZOLE SODIUM [Concomitant]
     Active Substance: RABEPRAZOLE SODIUM
  13. LINZESS [Concomitant]
     Active Substance: LINACLOTIDE
  14. MAGNESIUM OXIDE [Concomitant]
     Active Substance: MAGNESIUM OXIDE
  15. LIMAPROST [Concomitant]
     Active Substance: LIMAPROST
     Dosage: UNK
  16. SHAKUYAKUKANZOTO [Concomitant]
     Active Substance: HERBALS
  17. CYMBALTA [Concomitant]
     Active Substance: DULOXETINE HYDROCHLORIDE

REACTIONS (4)
  - Electrocardiogram ST segment elevation [Recovered/Resolved]
  - Nausea [Recovered/Resolved]
  - Discomfort [Recovered/Resolved]
  - Contrast media allergy [Recovered/Resolved]

NARRATIVE: CASE EVENT DATE: 20230919
